FAERS Safety Report 8828215 (Version 2)
Quarter: 2012Q4

REPORT INFORMATION
  Report Type: 
  Country: US (occurrence: US)
  Receive Date: 20121005
  Receipt Date: 20121025
  Transmission Date: 20130627
  Serious: No
  Sender: FDA-Public Use
  Company Number: US-PFIZER INC-2012243006

PATIENT
  Age: 61 Year
  Sex: Female

DRUGS (10)
  1. GLUCOTROL [Suspect]
     Dosage: UNK
  2. AMARYL [Suspect]
     Dosage: UNK
  3. AVANDIA [Suspect]
     Dosage: UNK
  4. BYETTA [Suspect]
     Dosage: UNK
  5. HUMALOG [Suspect]
     Dosage: UNK
  6. JANUMET [Suspect]
     Dosage: UNK
  7. LANTUS [Suspect]
     Dosage: UNK
  8. NOVOLIN R [Suspect]
     Dosage: UNK
  9. NOVOLOG [Suspect]
     Dosage: UNK
  10. VICTOZA [Suspect]
     Dosage: UNK

REACTIONS (1)
  - Drug hypersensitivity [Unknown]
